FAERS Safety Report 12208128 (Version 2)
Quarter: 2016Q4

REPORT INFORMATION
  Report Type: Report from Study
  Country: GB (occurrence: GB)
  Receive Date: 20160324
  Receipt Date: 20161013
  Transmission Date: 20170207
  Serious: Yes (Hospitalization)
  Sender: FDA-Public Use
  Company Number: GB-JNJFOC-20131206664

PATIENT
  Age: 42 Year
  Sex: Female
  Weight: 166 kg

DRUGS (5)
  1. MOVELAT CREAM [Concomitant]
     Route: 065
     Dates: start: 20110701
  2. ORLISTAT [Concomitant]
     Active Substance: ORLISTAT
     Route: 065
     Dates: start: 20120307
  3. STELARA [Suspect]
     Active Substance: USTEKINUMAB
     Indication: PSORIASIS
     Route: 058
     Dates: start: 20100301
  4. TRAMADOL. [Concomitant]
     Active Substance: TRAMADOL
     Route: 065
     Dates: start: 20110701
  5. NAPROXEN. [Concomitant]
     Active Substance: NAPROXEN
     Route: 065
     Dates: start: 20110802

REACTIONS (2)
  - Pancreatitis relapsing [Recovered/Resolved]
  - Biliary colic [Recovered/Resolved]

NARRATIVE: CASE EVENT DATE: 20130207
